FAERS Safety Report 9758926 (Version 1)
Quarter: 2013Q4

REPORT INFORMATION
  Report Type: Spontaneous
  Country: US (occurrence: None)
  Receive Date: 20131216
  Receipt Date: 20131216
  Transmission Date: 20140711
  Serious: No
  Sender: FDA-Public Use
  Company Number: 163-POMAL-13040098(2)

PATIENT
  Age: 63 Year
  Sex: Male

DRUGS (1)
  1. POMALYST [Suspect]
     Indication: PLASMA CELL MYELOMA
     Dosage: 4 MG, 21 IN 21 D, PO?1 MG, 1 IN 1 D, PO? ? ? ? ?

REACTIONS (7)
  - Diarrhoea [None]
  - Bone pain [None]
  - Blood pressure increased [None]
  - Blood glucose increased [None]
  - Back pain [None]
  - Insomnia [None]
  - Headache [None]
